FAERS Safety Report 10060389 (Version 1)
Quarter: 2014Q2

REPORT INFORMATION
  Report Type: Report from Study
  Country: FR (occurrence: FR)
  Receive Date: 20140404
  Receipt Date: 20140404
  Transmission Date: 20141212
  Serious: Yes (Death, Other)
  Sender: FDA-Public Use
  Company Number: FR-BAXTER-2014BAX017036

PATIENT
  Age: 84 Year
  Sex: Male

DRUGS (3)
  1. KIOVIG, 100 MG/ML, SOLUTION POUR PERFUSION [Suspect]
     Indication: ACQUIRED VON WILLEBRAND^S DISEASE
     Route: 042
  2. VON WILLEBRAND FACTOR [Suspect]
     Indication: ACQUIRED VON WILLEBRAND^S DISEASE
     Route: 065
  3. DESMOPRESSIN [Suspect]
     Indication: ACQUIRED VON WILLEBRAND^S DISEASE
     Route: 065

REACTIONS (2)
  - Therapeutic product ineffective [Unknown]
  - Death [Fatal]
